FAERS Safety Report 4685992-8 (Version None)
Quarter: 2005Q2

REPORT INFORMATION
  Report Type: 
  Country: None (occurrence: None)
  Receive Date: 20050606
  Receipt Date: 20050523
  Transmission Date: 20051028
  Serious: Yes (Hospitalization)
  Sender: FDA-Public Use
  Company Number: S05-USA-02499-01

PATIENT
  Age: 40 Year
  Sex: Male

DRUGS (3)
  1. LEXAPRO [Suspect]
  2. PREVACID [Concomitant]
  3. ALTACE [Concomitant]

REACTIONS (7)
  - ALANINE AMINOTRANSFERASE INCREASED [None]
  - ASPARTATE AMINOTRANSFERASE INCREASED [None]
  - BILIRUBIN CONJUGATED INCREASED [None]
  - BLOOD BILIRUBIN INCREASED [None]
  - DIVERTICULITIS [None]
  - GRANULOMATOUS LIVER DISEASE [None]
  - INTESTINAL PERFORATION [None]
